FAERS Safety Report 5914469-4 (Version None)
Quarter: 2008Q4

REPORT INFORMATION
  Report Type: 
  Country: None (occurrence: None)
  Receive Date: 20081007
  Receipt Date: 20080926
  Transmission Date: 20090506
  Serious: Yes (Other)
  Sender: FDA-Public Use
  Company Number: SPI200800444

PATIENT
  Age: 49 Year
  Sex: Female
  Weight: 88.4 kg

DRUGS (1)
  1. AMITIZA [Suspect]
     Indication: CONSTIPATION
     Dosage: MCG,BID,ORAL
     Route: 048
     Dates: start: 20080721, end: 20080725

REACTIONS (5)
  - ABDOMINAL PAIN [None]
  - GALLBLADDER DISORDER [None]
  - GALLBLADDER OPERATION [None]
  - POST PROCEDURAL COMPLICATION [None]
  - VOMITING [None]
